FAERS Safety Report 13431401 (Version 1)
Quarter: 2017Q2

REPORT INFORMATION
  Report Type: Spontaneous
  Country: DE (occurrence: DE)
  Receive Date: 20170412
  Receipt Date: 20170412
  Transmission Date: 20170830
  Serious: Yes (Other)
  Sender: FDA-Public Use
  Company Number: DE-ALKABELLO-2017AA001003

PATIENT
  Age: 32 Year
  Sex: Male
  Weight: 75 kg

DRUGS (2)
  1. ACARIZAX 12 SQ-HDM LYOPHILISAT ZUM EINNEHMEN [Suspect]
     Active Substance: DERMATOPHAGOIDES FARINAE\DERMATOPHAGOIDES PTERONYSSINUS
     Indication: MITE ALLERGY
     Dosage: DOSE UNIT:12 SQ-HOUSE DUST MITE
     Dates: start: 20161107, end: 201701
  2. AERIUS [Concomitant]
     Active Substance: DESLORATADINE
     Indication: CONJUNCTIVITIS
     Route: 048
     Dates: start: 20161108, end: 201701

REACTIONS (6)
  - Tremor [Recovered/Resolved]
  - Paraesthesia [Recovered/Resolved]
  - Discomfort [Recovered/Resolved]
  - Dizziness [Recovered/Resolved]
  - Oral discomfort [Unknown]
  - Fall [Recovered/Resolved]

NARRATIVE: CASE EVENT DATE: 201701
